FAERS Safety Report 21229203 (Version 2)
Quarter: 2022Q3

REPORT INFORMATION
  Report Type: Report from Study
  Country: IL (occurrence: IL)
  Receive Date: 20220818
  Receipt Date: 20220913
  Transmission Date: 20221027
  Serious: Yes (Hospitalization)
  Sender: FDA-Public Use
  Company Number: IL-ABBVIE-20K-082-3708599-00

PATIENT
  Age: 84 Year
  Sex: Male
  Weight: 74 kg

DRUGS (37)
  1. VENETOCLAX [Suspect]
     Active Substance: VENETOCLAX
     Indication: Chronic lymphocytic leukaemia
     Route: 048
     Dates: start: 20200826, end: 20200901
  2. VENETOCLAX [Suspect]
     Active Substance: VENETOCLAX
     Route: 048
     Dates: start: 20200902, end: 20200908
  3. VENETOCLAX [Suspect]
     Active Substance: VENETOCLAX
     Route: 048
     Dates: start: 20200909, end: 20200915
  4. VENETOCLAX [Suspect]
     Active Substance: VENETOCLAX
     Route: 048
     Dates: start: 20200916, end: 20200922
  5. VENETOCLAX [Suspect]
     Active Substance: VENETOCLAX
     Route: 048
     Dates: start: 20200923, end: 20200929
  6. VENETOCLAX [Suspect]
     Active Substance: VENETOCLAX
     Route: 048
     Dates: start: 20200930, end: 20201028
  7. OBINUTUZUMAB [Suspect]
     Active Substance: OBINUTUZUMAB
     Indication: CD20 antigen positive
     Dosage: CYCLE NUMBER 1
     Route: 065
     Dates: start: 20200729, end: 20200730
  8. OBINUTUZUMAB [Suspect]
     Active Substance: OBINUTUZUMAB
     Dosage: CYCLE NUMBER 2
     Route: 065
     Dates: start: 20200805, end: 20200805
  9. OBINUTUZUMAB [Suspect]
     Active Substance: OBINUTUZUMAB
     Dosage: CYCLE NUMBER 3
     Route: 065
     Dates: start: 20200812, end: 20200812
  10. OBINUTUZUMAB [Suspect]
     Active Substance: OBINUTUZUMAB
     Dosage: CYCLE NUMBER 4
     Route: 065
     Dates: start: 20200909, end: 20200909
  11. OBINUTUZUMAB [Suspect]
     Active Substance: OBINUTUZUMAB
     Dosage: CYCLE NUMBER 5
     Route: 065
     Dates: start: 20201028, end: 20201028
  12. OBINUTUZUMAB [Suspect]
     Active Substance: OBINUTUZUMAB
     Dosage: CYCLE NUMBER 6
     Route: 065
     Dates: start: 20201103, end: 20201103
  13. OBINUTUZUMAB [Suspect]
     Active Substance: OBINUTUZUMAB
     Dosage: CYCLE NUMBER 7
     Route: 065
     Dates: start: 20201125, end: 20201125
  14. PRAMIN [Concomitant]
     Indication: Gastrooesophageal reflux disease
     Dates: start: 20200930, end: 20200930
  15. ALLOPURINOL [Concomitant]
     Active Substance: ALLOPURINOL
     Indication: Prophylaxis
     Dates: start: 20200805, end: 20200805
  16. ALLOPURINOL [Concomitant]
     Active Substance: ALLOPURINOL
     Dates: start: 20200902, end: 20200902
  17. ALLOPURINOL [Concomitant]
     Active Substance: ALLOPURINOL
     Dates: start: 20200909, end: 20200909
  18. ALLOPURINOL [Concomitant]
     Active Substance: ALLOPURINOL
     Dates: start: 20200923
  19. AMLODIPINE [Concomitant]
     Active Substance: AMLODIPINE BESYLATE
     Indication: Hypertension
     Dates: start: 20191117
  20. ATACAND [Concomitant]
     Active Substance: CANDESARTAN CILEXETIL
     Indication: Hypertension
     Dates: start: 20201125
  21. CARTIA [Concomitant]
     Indication: Prophylaxis
     Dates: start: 20191117
  22. CRESTOR [Concomitant]
     Active Substance: ROSUVASTATIN CALCIUM
     Indication: Product used for unknown indication
     Dates: start: 20191117
  23. NEXIUM [Concomitant]
     Active Substance: ESOMEPRAZOLE MAGNESIUM
     Indication: Gastrooesophageal reflux disease
     Dates: start: 20191117
  24. PLAVIX [Concomitant]
     Active Substance: CLOPIDOGREL BISULFATE
     Indication: Antiplatelet therapy
     Dates: start: 20200205
  25. LINAGLIPTIN [Concomitant]
     Active Substance: LINAGLIPTIN
     Indication: Type 2 diabetes mellitus
     Dates: start: 20191117
  26. VITAMIN D [Concomitant]
     Active Substance: VITAMIN D NOS
     Indication: Vitamin supplementation
     Dates: start: 20191117
  27. VENOFER [Concomitant]
     Active Substance: IRON SUCROSE
     Indication: Anaemia
     Dates: start: 20210315, end: 202103
  28. VENOFER [Concomitant]
     Active Substance: IRON SUCROSE
     Dates: start: 20210322, end: 20210322
  29. VENOFER [Concomitant]
     Active Substance: IRON SUCROSE
     Dates: start: 20210324, end: 20210324
  30. VENOFER [Concomitant]
     Active Substance: IRON SUCROSE
     Dates: start: 20210405, end: 20210405
  31. VENOFER [Concomitant]
     Active Substance: IRON SUCROSE
     Dates: start: 20210407, end: 20210407
  32. VENOFER [Concomitant]
     Active Substance: IRON SUCROSE
     Dates: start: 20210412, end: 20210412
  33. VENOFER [Concomitant]
     Active Substance: IRON SUCROSE
     Dates: start: 20210414, end: 20210414
  34. COVID-19 VACCINE [Concomitant]
     Indication: COVID-19 prophylaxis
     Dates: start: 20201230, end: 20201230
  35. COVID-19 VACCINE [Concomitant]
     Dates: start: 20210120, end: 20210120
  36. FUSID [Concomitant]
     Indication: Diuretic therapy
     Route: 065
  37. BISOPROLOL FUMARATE [Concomitant]
     Active Substance: BISOPROLOL FUMARATE
     Indication: Cardiac failure
     Route: 065

REACTIONS (12)
  - Cellulitis [Recovered/Resolved]
  - Proteinuria [Recovered/Resolved]
  - Large intestine polyp [Recovered/Resolved]
  - Hepatic enzyme increased [Not Recovered/Not Resolved]
  - Cellulitis [Recovered/Resolved]
  - Eosinophilia [Not Recovered/Not Resolved]
  - Nausea [Recovered/Resolved]
  - Nausea [Recovered/Resolved]
  - Neutropenia [Recovered/Resolved]
  - Neutropenia [Recovered/Resolved]
  - Anaemia [Recovered/Resolved]
  - Anaemia [Not Recovered/Not Resolved]

NARRATIVE: CASE EVENT DATE: 20200923
